FAERS Safety Report 4965138-9 (Version None)
Quarter: 2006Q1

REPORT INFORMATION
  Report Type: 
  Country: None (occurrence: None)
  Receive Date: 20060201
  Receipt Date: 20051011
  Transmission Date: 20060701
  Serious: No
  Sender: FDA-Public Use
  Company Number: 2005PV003055

PATIENT
  Age: 78 Year
  Sex: Female
  Weight: 90.7194 kg

DRUGS (12)
  1. BYETTA [Suspect]
     Indication: DIABETES MELLITUS NON-INSULIN-DEPENDENT
     Dosage: 5 MCG;BID;SC
     Route: 058
     Dates: start: 20051006
  2. AMARYL [Concomitant]
  3. ACTOS [Concomitant]
  4. PROVIGIL [Concomitant]
  5. L-THYROXINE [Concomitant]
  6. ZOCOR [Concomitant]
  7. NEXIUM [Concomitant]
  8. LISINOPRIL [Concomitant]
  9. BACLOFEN [Concomitant]
  10. TYLENOL (CAPLET) [Concomitant]
  11. VITAMIN [Concomitant]
  12. CALCIUM GLUCONATE [Concomitant]

REACTIONS (3)
  - BLOOD GLUCOSE DECREASED [None]
  - HYPERHIDROSIS [None]
  - OEDEMA PERIPHERAL [None]
